FAERS Safety Report 9687913 (Version 4)
Quarter: 2014Q2

REPORT INFORMATION
  Report Type: Report from Study
  Country: US (occurrence: US)
  Receive Date: 20131114
  Receipt Date: 20140603
  Transmission Date: 20141212
  Serious: Yes (Other)
  Sender: FDA-Public Use
  Company Number: PHHY2013US124931

PATIENT
  Age: 25 Year
  Sex: Female
  Weight: 85 kg

DRUGS (12)
  1. MYFORTIC [Suspect]
     Indication: HEART TRANSPLANT
     Dosage: 720 MG, BID (360 MG, 2 BID)
     Route: 048
     Dates: start: 20120220, end: 20130605
  2. MYFORTIC [Suspect]
     Dosage: 720 MG, BID (360 MG, 2 BID)
     Route: 048
     Dates: end: 20130614
  3. TACROLIMUS [Suspect]
     Indication: HEART TRANSPLANT
     Dosage: 2 MG, BID
     Route: 048
     Dates: start: 20051009
  4. PREDNISONE [Suspect]
     Indication: HEART TRANSPLANT
     Dosage: 5 MG, QD
     Route: 048
     Dates: start: 20130605, end: 20130717
  5. NO TREATMENT RECEIVED [Suspect]
     Dosage: UNK
  6. PRAVASTATIN [Concomitant]
     Dosage: UNK
     Dates: end: 20130605
  7. SERTRALINE [Concomitant]
     Dosage: UNK
     Dates: end: 20130605
  8. METOPROLOL [Concomitant]
     Dosage: UNK
     Dates: end: 20130605
  9. ANTIBIOTICS [Concomitant]
  10. TENORMIN [Concomitant]
     Indication: HYPERTENSION
     Dosage: UNK
     Route: 048
     Dates: start: 20050909
  11. PRAVACHOL [Concomitant]
     Dosage: 40 MG, UNK
     Route: 048
     Dates: end: 20130614
  12. ZOLOFT [Concomitant]
     Indication: DEPRESSION
     Dosage: 100 MG, UNK
     Route: 048

REACTIONS (2)
  - Abortion spontaneous [Recovered/Resolved]
  - Maternal exposure during pregnancy [Unknown]
